FAERS Safety Report 5103323-6 (Version None)
Quarter: 2006Q3

REPORT INFORMATION
  Report Type: 
  Country: None (occurrence: None)
  Receive Date: 20060913
  Receipt Date: 20060907
  Transmission Date: 20061208
  Serious: Yes (Disabling)
  Sender: FDA-Public Use
  Company Number: GB-AVENTIS-200619343GDDC

PATIENT
  Age: 59 Year
  Sex: Female

DRUGS (2)
  1. METRONIDAZOLE [Suspect]
     Indication: TOOTH ABSCESS
     Route: 048
     Dates: start: 20060427, end: 20060501
  2. DICLOFENAC [Concomitant]
     Indication: PAIN
     Route: 048
     Dates: start: 20060202

REACTIONS (4)
  - DIZZINESS [None]
  - DRY MOUTH [None]
  - PHARYNGOLARYNGEAL PAIN [None]
  - URTICARIA [None]
